FAERS Safety Report 6185528-9 (Version None)
Quarter: 2009Q2

REPORT INFORMATION
  Report Type: 
  Country: None (occurrence: None)
  Receive Date: 20090511
  Receipt Date: 20090505
  Transmission Date: 20091009
  Serious: Yes (Hospitalization, Other)
  Sender: FDA-Public Use
  Company Number: US-ASTRAZENECA-2009AP02990

PATIENT
  Age: 62 Year
  Sex: Male

DRUGS (12)
  1. ZESTRIL [Suspect]
     Route: 048
  2. ALDACTONE [Suspect]
  3. DIGOXIN [Suspect]
  4. DIGITALIS TAB [Suspect]
  5. TOPROL-XL [Concomitant]
  6. ASPIRIN [Concomitant]
  7. SYNTHROID [Concomitant]
  8. AMARYL [Concomitant]
  9. FUROSEMIDE [Concomitant]
  10. NEURONTIN [Concomitant]
  11. IMDUR [Concomitant]
  12. COUMADIN [Concomitant]

REACTIONS (3)
  - HYPERKALAEMIA [None]
  - METABOLIC ACIDOSIS [None]
  - RENAL FAILURE [None]
